FAERS Safety Report 8024654-6 (Version None)
Quarter: 2012Q1

REPORT INFORMATION
  Report Type: 
  Country: None (occurrence: None)
  Receive Date: 20120105
  Receipt Date: 20111230
  Transmission Date: 20120608
  Serious: Yes (Hospitalization, Other)
  Sender: FDA-Public Use
  Company Number: US-AMGEN-USASP2011003454

PATIENT
  Age: 65 Year
  Sex: Female

DRUGS (1)
  1. ENBREL [Suspect]
     Indication: RHEUMATOID ARTHRITIS
     Dosage: 25 MG, 2 TIMES/WK
     Dates: start: 20050716, end: 20070101

REACTIONS (6)
  - GASTROINTESTINAL CARCINOMA [None]
  - POLLAKIURIA [None]
  - BLADDER DISORDER [None]
  - PAIN [None]
  - RHEUMATOID ARTHRITIS [None]
  - CATHETER SITE RELATED REACTION [None]
